FAERS Safety Report 6173095-5 (Version None)
Quarter: 2009Q2

REPORT INFORMATION
  Report Type: 
  Country: None (occurrence: None)
  Receive Date: 20090424
  Receipt Date: 20090128
  Transmission Date: 20091009
  Serious: No
  Sender: FDA-Public Use
  Company Number: ALL1-2009-00211

PATIENT
  Sex: Female
  Weight: 113.4 kg

DRUGS (1)
  1. VYVANSE [Suspect]
     Indication: ATTENTION DEFICIT/HYPERACTIVITY DISORDER
     Dosage: 30 MG, QX/DAY, QD, ORAL
     Route: 048
     Dates: start: 20090128

REACTIONS (3)
  - ERYTHEMA [None]
  - RASH [None]
  - SWELLING FACE [None]
